FAERS Safety Report 20482996 (Version 2)
Quarter: 2022Q1

REPORT INFORMATION
  Report Type: Spontaneous
  Country: US (occurrence: US)
  Receive Date: 20220217
  Receipt Date: 20220318
  Transmission Date: 20220423
  Serious: No
  Sender: FDA-Public Use
  Company Number: US-GLAXOSMITHKLINE-USCH2022006472

PATIENT
  Sex: Female

DRUGS (3)
  1. VOLTAREN [Suspect]
     Active Substance: DICLOFENAC SODIUM
     Indication: Arthritis
     Dosage: UNK
  2. VOLTAREN ARTHRITIS PAIN [Suspect]
     Active Substance: DICLOFENAC SODIUM
     Indication: Arthritis
     Dosage: UNK
  3. VOLTAREN ARTHRITIS PAIN [Suspect]
     Active Substance: DICLOFENAC SODIUM

REACTIONS (2)
  - Product use issue [Unknown]
  - Wrong technique in product usage process [Unknown]

NARRATIVE: CASE EVENT DATE: 20220211
